FAERS Safety Report 14369955 (Version 1)
Quarter: 2018Q1

REPORT INFORMATION
  Report Type: Spontaneous
  Country: US (occurrence: US)
  Receive Date: 20180110
  Receipt Date: 20180110
  Transmission Date: 20180509
  Serious: Yes (Other)
  Sender: FDA-Public Use
  Company Number: US-009507513-1712USA001665

PATIENT
  Age: 64 Year
  Sex: Male
  Weight: 79.5 kg

DRUGS (1)
  1. KEYTRUDA [Suspect]
     Active Substance: PEMBROLIZUMAB
     Indication: COLORECTAL CANCER
     Dosage: 200 MG, Q3-4 WEEKS
     Route: 042
     Dates: start: 20170417, end: 20170814

REACTIONS (3)
  - Blood creatine phosphokinase increased [Recovering/Resolving]
  - Thyroid hormones increased [Recovering/Resolving]
  - Myositis [Recovering/Resolving]

NARRATIVE: CASE EVENT DATE: 20170814
